FAERS Safety Report 7913887-2 (Version None)
Quarter: 2011Q4

REPORT INFORMATION
  Report Type: 
  Country: None (occurrence: None)
  Receive Date: 20111115
  Receipt Date: 20111109
  Transmission Date: 20120403
  Serious: Yes (Other)
  Sender: FDA-Public Use
  Company Number: JP-PFIZER INC-2011274862

PATIENT
  Age: 71 Year
  Sex: Female

DRUGS (1)
  1. TEMSIROLIMUS [Suspect]

REACTIONS (1)
  - BACTERAEMIA [None]
